FAERS Safety Report 9526950 (Version 1)
Quarter: 2013Q3

REPORT INFORMATION
  Report Type: Spontaneous
  Country: JP (occurrence: JP)
  Receive Date: 20130916
  Receipt Date: 20130916
  Transmission Date: 20140515
  Serious: Yes (Other)
  Sender: FDA-Public Use
  Company Number: JP-UCBSA-097149

PATIENT
  Age: 64 Year
  Sex: Female

DRUGS (2)
  1. E KEPPRA [Suspect]
     Indication: EPILEPSY
     Route: 048
     Dates: start: 20130316, end: 20130402
  2. DEPAKENE [Concomitant]
     Dosage: DAILY DOSE: 800 MG
     Route: 048

REACTIONS (1)
  - Platelet count decreased [Unknown]
